FAERS Safety Report 9450191 (Version 1)
Quarter: 2013Q3

REPORT INFORMATION
  Report Type: Spontaneous
  Country: BR (occurrence: BR)
  Receive Date: 20130809
  Receipt Date: 20130809
  Transmission Date: 20140515
  Serious: Yes (Other)
  Sender: FDA-Public Use
  Company Number: BR-JNJFOC-20130800728

PATIENT
  Age: 33 Year
  Sex: Female
  Weight: 71.8 kg

DRUGS (12)
  1. REMICADE [Suspect]
     Indication: CROHN^S DISEASE
     Route: 042
     Dates: start: 20130730
  2. REMICADE [Suspect]
     Indication: CROHN^S DISEASE
     Route: 042
     Dates: start: 20130716
  3. REMICADE [Suspect]
     Indication: CROHN^S DISEASE
     Route: 042
     Dates: start: 201210
  4. REMICADE [Suspect]
     Indication: COLITIS
     Route: 042
     Dates: start: 20130730
  5. REMICADE [Suspect]
     Indication: COLITIS
     Route: 042
     Dates: start: 201210
  6. REMICADE [Suspect]
     Indication: COLITIS
     Route: 042
     Dates: start: 20130716
  7. SUSTRATE [Concomitant]
     Indication: CARDIAC DISORDER
     Route: 065
  8. ALDOMET [Concomitant]
     Indication: HYPERTENSION
     Route: 065
  9. LOSARTAN [Concomitant]
     Indication: HYPERTENSION
     Route: 065
  10. ATENOLOL [Concomitant]
     Indication: HYPERTENSION
     Route: 065
  11. IMURAN [Concomitant]
     Route: 065
  12. NORIPURUM [Concomitant]
     Indication: ANAEMIA
     Route: 065
     Dates: start: 20130730

REACTIONS (13)
  - Haemorrhage [Unknown]
  - Dyspnoea [Recovered/Resolved]
  - Infusion related reaction [Recovered/Resolved]
  - Colitis ulcerative [Unknown]
  - Weight decreased [Unknown]
  - Vaginal haemorrhage [Recovered/Resolved]
  - Diarrhoea haemorrhagic [Recovered/Resolved]
  - Eyelid oedema [Recovered/Resolved]
  - Erythema [Recovered/Resolved]
  - Hypertensive crisis [Recovered/Resolved]
  - Chest pain [Recovered/Resolved]
  - Dermatitis allergic [Recovered/Resolved]
  - Vomiting [Unknown]
